FAERS Safety Report 17213562 (Version 1)
Quarter: 2020Q1

REPORT INFORMATION
  Report Type: Spontaneous
  Country: US (occurrence: US)
  Receive Date: 20191227
  Receipt Date: 20191227
  Transmission Date: 20200409
  Serious: Yes (Other)
  Sender: FDA-Public Use
  Company Number: None

PATIENT
  Age: 91 Year
  Sex: Female
  Weight: 64.8 kg

DRUGS (12)
  1. COENZYME Q10 [Concomitant]
     Active Substance: UBIDECARENONE
  2. FUROSEMIDE. [Concomitant]
     Active Substance: FUROSEMIDE
  3. PROCHLORPERAZINE. [Concomitant]
     Active Substance: PROCHLORPERAZINE
  4. ZOLPIDEM [Concomitant]
     Active Substance: ZOLPIDEM TARTRATE
  5. FOLIC ACID. [Concomitant]
     Active Substance: FOLIC ACID
  6. LUTEIN [Concomitant]
     Active Substance: LUTEIN
  7. TRIAZOLAM. [Concomitant]
     Active Substance: TRIAZOLAM
  8. CAPECITABINE. [Suspect]
     Active Substance: CAPECITABINE
     Indication: PANCREATIC CARCINOMA
     Route: 048
     Dates: start: 20191120
  9. VITAMIN B12 [Concomitant]
     Active Substance: CYANOCOBALAMIN
  10. CAPECITABINE. [Suspect]
     Active Substance: CAPECITABINE
     Indication: COLON CANCER
     Route: 048
     Dates: start: 20191120
  11. QUETIAPINE. [Concomitant]
     Active Substance: QUETIAPINE
  12. VITAMIN D2 [Concomitant]
     Active Substance: ERGOCALCIFEROL

REACTIONS (1)
  - Urinary tract infection [None]

NARRATIVE: CASE EVENT DATE: 20191227
